FAERS Safety Report 14845103 (Version 1)
Quarter: 2018Q2

REPORT INFORMATION
  Report Type: Report from Study
  Country: PL (occurrence: PL)
  Receive Date: 20180504
  Receipt Date: 20180504
  Transmission Date: 20180711
  Serious: Yes (Hospitalization)
  Sender: FDA-Public Use
  Company Number: PL-ROCHE-2114457

PATIENT
  Sex: Female
  Weight: 73 kg

DRUGS (2)
  1. ROACTEMRA [Suspect]
     Active Substance: TOCILIZUMAB
     Indication: RHEUMATOID ARTHRITIS
     Dosage: DOSE BASED ON BODY WEIGHT (73KG)
     Route: 042
     Dates: start: 20170515, end: 20180219
  2. ROACTEMRA [Suspect]
     Active Substance: TOCILIZUMAB
     Indication: RHEUMATOID ARTHRITIS
     Dosage: 5 DOSES
     Route: 058
     Dates: start: 201803

REACTIONS (3)
  - Transient ischaemic attack [Unknown]
  - Speech disorder [Unknown]
  - Hemiparesis [Unknown]
